FAERS Safety Report 15298135 (Version 1)
Quarter: 2018Q3

REPORT INFORMATION
  Report Type: Spontaneous
  Country: FR (occurrence: FR)
  Receive Date: 20180820
  Receipt Date: 20180820
  Transmission Date: 20181010
  Serious: Yes (Hospitalization)
  Sender: FDA-Public Use
  Company Number: FR-009507513-1808FRA004994

PATIENT
  Age: 33 Year
  Sex: Female
  Weight: 59 kg

DRUGS (11)
  1. BETAMETHASONE SODIUM PHOSPHATE [Suspect]
     Active Substance: BETAMETHASONE SODIUM PHOSPHATE
     Indication: TENDON DISORDER
     Dosage: 1 DF, UNK
     Route: 051
     Dates: start: 20180628, end: 20180628
  2. TRAMADOL HYDROCHLORIDE. [Concomitant]
     Active Substance: TRAMADOL HYDROCHLORIDE
  3. ZOLPIDEM [Concomitant]
     Active Substance: ZOLPIDEM\ZOLPIDEM TARTRATE
  4. ANTALNOX [Suspect]
     Active Substance: NAPROXEN SODIUM
     Indication: TENDON DISORDER
     Dosage: 2 DF, QD
     Route: 048
     Dates: start: 20180623, end: 20180703
  5. PANTOPRAZOLE [Concomitant]
     Active Substance: PANTOPRAZOLE
  6. CLOBAZAM [Concomitant]
     Active Substance: CLOBAZAM
  7. NICARDIPINE HYDROCHLORIDE. [Concomitant]
     Active Substance: NICARDIPINE HYDROCHLORIDE
  8. LAMOTRIGINE. [Concomitant]
     Active Substance: LAMOTRIGINE
  9. FLECTOR [Suspect]
     Active Substance: DICLOFENAC EPOLAMINE
     Indication: TENDON DISORDER
     Dosage: 2 DF, QD
     Route: 003
     Dates: start: 20180626, end: 20180703
  10. NITROFURANTOIN. [Concomitant]
     Active Substance: NITROFURANTOIN
  11. ZYMAD [Concomitant]
     Active Substance: CHOLECALCIFEROL

REACTIONS (2)
  - Injection site abscess [Recovering/Resolving]
  - Injection site pustule [Recovering/Resolving]

NARRATIVE: CASE EVENT DATE: 20180703
